FAERS Safety Report 8547198-1 (Version None)
Quarter: 2012Q3

REPORT INFORMATION
  Report Type: 
  Country: None (occurrence: None)
  Receive Date: 20120727
  Receipt Date: 20120307
  Transmission Date: 20120928
  Serious: No
  Sender: FDA-Public Use
  Company Number: US-ASTRAZENECA-2012SE13437

PATIENT
  Age: 45 Year
  Sex: Female
  Weight: 69.4 kg

DRUGS (8)
  1. MORPHINE SULFATE [Concomitant]
     Indication: BACK PAIN
     Route: 048
  2. BENADRYL OT [Concomitant]
     Indication: PRURITUS
     Route: 048
  3. SEROQUEL XR [Suspect]
     Indication: INSOMNIA
     Route: 048
  4. NEURONTIN [Concomitant]
     Indication: BACK PAIN
     Route: 048
  5. PERCOCET [Concomitant]
     Indication: PAIN
     Dosage: 10/3.2 5MG EVERY 4 TO 6 HOURS
     Route: 048
  6. DIAZEPAM [Concomitant]
     Indication: NERVOUSNESS
     Route: 048
  7. TRAMADOLE [Concomitant]
     Indication: BACK PAIN
     Route: 048
  8. NYQUIL [Concomitant]
     Indication: UPPER RESPIRATORY TRACT INFECTION
     Dosage: AS REQUIRED
     Route: 048

REACTIONS (11)
  - UPPER RESPIRATORY TRACT INFECTION [None]
  - INSOMNIA [None]
  - DRUG DOSE OMISSION [None]
  - ACTIVITIES OF DAILY LIVING IMPAIRED [None]
  - SOMNOLENCE [None]
  - OFF LABEL USE [None]
  - MIDDLE INSOMNIA [None]
  - BACK DISORDER [None]
  - ARTHRITIS [None]
  - HYPERTENSION [None]
  - ADVERSE DRUG REACTION [None]
